FAERS Safety Report 19628049 (Version 2)
Quarter: 2021Q3

REPORT INFORMATION
  Report Type: Spontaneous
  Country: CN (occurrence: CN)
  Receive Date: 20210729
  Receipt Date: 20210803
  Transmission Date: 20211014
  Serious: Yes (Hospitalization)
  Sender: FDA-Public Use
  Company Number: CN-ASTRAZENECA-2021A643245

PATIENT
  Sex: Female
  Weight: 60 kg

DRUGS (1)
  1. TAGRISSO [Suspect]
     Active Substance: OSIMERTINIB
     Indication: LUNG NEOPLASM MALIGNANT
     Dosage: ONE TABLET EACH DAY
     Route: 048

REACTIONS (3)
  - Ulcer [Not Recovered/Not Resolved]
  - Swelling [Recovering/Resolving]
  - Rash [Not Recovered/Not Resolved]
